FAERS Safety Report 9993493 (Version 2)
Quarter: 2014Q1

REPORT INFORMATION
  Report Type: Spontaneous
  Country: GB (occurrence: GB)
  Receive Date: 20140310
  Receipt Date: 20140318
  Transmission Date: 20141002
  Serious: Yes (Death)
  Sender: FDA-Public Use
  Company Number: PHFR2014GB002037

PATIENT
  Age: 60 Year
  Sex: Male

DRUGS (3)
  1. CLOZARIL [Suspect]
     Indication: SCHIZOPHRENIA
     Dosage: UNK
     Dates: start: 20010701
  2. CLOZARIL [Suspect]
     Dosage: 800 MG (250 MG, 250 MG, 350 MG) DAILY
  3. SULPRIDE [Suspect]
     Indication: SCHIZOPHRENIA
     Dosage: 400 MG, DAILY

REACTIONS (3)
  - Lung neoplasm malignant [Fatal]
  - Platelet count increased [Unknown]
  - Neutrophil count increased [Unknown]
